FAERS Safety Report 7975839-6 (Version None)
Quarter: 2011Q4

REPORT INFORMATION
  Report Type: 
  Country: None (occurrence: None)
  Receive Date: 20111213
  Receipt Date: 20110926
  Transmission Date: 20120403
  Serious: No
  Sender: FDA-Public Use
  Company Number: US-AMGEN-USASP2011049794

PATIENT
  Age: 62 Year
  Sex: Female

DRUGS (1)
  1. ENBREL [Suspect]
     Indication: RHEUMATOID ARTHRITIS
     Dosage: 50 MG, QWK
     Dates: start: 20070525, end: 20110918

REACTIONS (6)
  - RHEUMATOID ARTHRITIS [None]
  - LIMB INJURY [None]
  - LOCALISED OEDEMA [None]
  - WOUND INFECTION [None]
  - SKIN INJURY [None]
  - ASTHENIA [None]
